FAERS Safety Report 18381259 (Version 4)
Quarter: 2021Q1

REPORT INFORMATION
  Report Type: Spontaneous
  Country: JP (occurrence: JP)
  Receive Date: 20201014
  Receipt Date: 20210305
  Transmission Date: 20210419
  Serious: Yes (Other)
  Sender: FDA-Public Use
  Company Number: JP-PFIZER INC-2020393924

PATIENT
  Age: 82 Year
  Sex: Male

DRUGS (6)
  1. GEMCITABINE HYDROCHLORIDE. [Suspect]
     Active Substance: GEMCITABINE HYDROCHLORIDE
     Indication: PANCREATIC CARCINOMA
     Dosage: 1800 MG, CYCLIC
  2. PACLITAXEL. [Suspect]
     Active Substance: PACLITAXEL
     Indication: PANCREATIC CARCINOMA
     Dosage: 226 MG, CYCLIC
  3. GEMCITABINE HYDROCHLORIDE. [Suspect]
     Active Substance: GEMCITABINE HYDROCHLORIDE
     Dosage: 1400 MG, CYCLIC (FREQ:4 {CYCLICAL})
  4. PACLITAXEL. [Suspect]
     Active Substance: PACLITAXEL
     Dosage: 174 MG, CYCLIC (FREQ:4 {CYCLICAL})
  5. ALLOPURINOL. [Concomitant]
     Active Substance: ALLOPURINOL
     Indication: HYPERURICAEMIA
     Dosage: UNK
  6. DEXAMETHASONE. [Concomitant]
     Active Substance: DEXAMETHASONE
     Indication: PANCREATIC CARCINOMA
     Dosage: 19.8 MG, MONTHLY (6.6 MG PER DOSE, THREE TIMES PER MONTH)

REACTIONS (3)
  - Neuropathy peripheral [Unknown]
  - Dyspnoea exertional [Unknown]
  - Neutropenia [Unknown]
